FAERS Safety Report 13121363 (Version 4)
Quarter: 2019Q1

REPORT INFORMATION
  Report Type: Spontaneous
  Country: US (occurrence: US)
  Receive Date: 20170117
  Receipt Date: 20190102
  Transmission Date: 20190417
  Serious: Yes (Hospitalization, Other)
  Sender: FDA-Public Use
  Company Number: US-LUNDBECK-DKLU2024981

PATIENT
  Age: 16 Year
  Sex: Male

DRUGS (12)
  1. SABRIL [Suspect]
     Active Substance: VIGABATRIN
     Route: 048
  2. DIVALPROEX [Concomitant]
     Active Substance: DIVALPROEX SODIUM
     Indication: PRODUCT USED FOR UNKNOWN INDICATION
     Dosage: 375MG AND 500MG
     Route: 065
  3. SABRIL [Suspect]
     Active Substance: VIGABATRIN
     Route: 048
  4. SABRIL [Suspect]
     Active Substance: VIGABATRIN
     Route: 048
     Dates: start: 20110507
  5. SABRIL [Suspect]
     Active Substance: VIGABATRIN
     Indication: EPILEPSY
     Route: 048
     Dates: start: 2015
  6. SABRIL [Suspect]
     Active Substance: VIGABATRIN
     Route: 048
  7. SABRIL [Suspect]
     Active Substance: VIGABATRIN
     Indication: INFANTILE SPASMS
     Route: 048
     Dates: start: 2015
  8. SABRIL [Suspect]
     Active Substance: VIGABATRIN
     Route: 048
  9. SABRIL [Suspect]
     Active Substance: VIGABATRIN
     Indication: SEIZURE
     Route: 048
     Dates: start: 2010, end: 2012
  10. SABRIL [Suspect]
     Active Substance: VIGABATRIN
     Route: 048
  11. SABRIL [Suspect]
     Active Substance: VIGABATRIN
     Route: 048
  12. SABRIL [Suspect]
     Active Substance: VIGABATRIN
     Route: 048

REACTIONS (11)
  - Retinal degeneration [Unknown]
  - Weight decreased [Recovered/Resolved]
  - Decreased appetite [Recovered/Resolved]
  - Insomnia [Unknown]
  - Seizure [Unknown]
  - Hallucination [Unknown]
  - Drooling [Unknown]
  - Brain malformation [Unknown]
  - Visual field defect [Unknown]
  - Anxiety [Unknown]
  - Condition aggravated [Unknown]

NARRATIVE: CASE EVENT DATE: 2012
